FAERS Safety Report 6825557-2 (Version None)
Quarter: 2010Q3

REPORT INFORMATION
  Report Type: 
  Country: None (occurrence: None)
  Receive Date: 20100708
  Receipt Date: 20070614
  Transmission Date: 20110219
  Serious: No
  Sender: FDA-Public Use
  Company Number: US-PFIZER INC-2006148070

PATIENT
  Sex: Female
  Weight: 83.46 kg

DRUGS (6)
  1. CHANTIX [Suspect]
     Indication: SMOKING CESSATION THERAPY
     Dates: start: 20060101
  2. ISOSORBIDE [Concomitant]
  3. OMEPRAZOLE [Concomitant]
  4. THYROID TAB [Concomitant]
  5. PAXIL [Concomitant]
  6. PRAVACHOL [Concomitant]

REACTIONS (1)
  - WEIGHT DECREASED [None]
